FAERS Safety Report 7125304-3 (Version None)
Quarter: 2010Q4

REPORT INFORMATION
  Report Type: 
  Country: None (occurrence: None)
  Receive Date: 20101129
  Receipt Date: 20101119
  Transmission Date: 20110411
  Serious: Yes (Hospitalization, Other)
  Sender: FDA-Public Use
  Company Number: US-AMGEN-KDL201393

PATIENT

DRUGS (1)
  1. ENBREL [Suspect]
     Indication: RHEUMATOID ARTHRITIS
     Dosage: 50 MG, QWK
     Route: 058
     Dates: start: 20061101

REACTIONS (9)
  - CONTUSION [None]
  - DYSPNOEA [None]
  - ORTHOPNOEA [None]
  - PAIN [None]
  - PLATELET COUNT DECREASED [None]
  - PRODUCTIVE COUGH [None]
  - RED BLOOD CELL SEDIMENTATION RATE INCREASED [None]
  - SPUTUM DISCOLOURED [None]
  - THERMAL BURN [None]
